FAERS Safety Report 8865815 (Version 1)
Quarter: 2012Q4

REPORT INFORMATION
  Report Type: 
  Country: US (occurrence: US)
  Receive Date: 20121024
  Receipt Date: 20121024
  Transmission Date: 20130627
  Serious: No
  Sender: FDA-Public Use
  Company Number: US-AMGEN-USASP2011068067

PATIENT
  Age: 53 Year
  Sex: Female
  Weight: 90.7 kg

DRUGS (8)
  1. ENBREL [Suspect]
     Indication: RHEUMATOID ARTHRITIS
     Dosage: 50 mg, qwk
     Route: 058
     Dates: start: 20101221, end: 20111130
  2. METHOTREXATE [Concomitant]
     Dosage: 2.5 mg, UNK
  3. VENLAFAXINE [Concomitant]
     Dosage: 50 mg, UNK
  4. LISINOPRIL HCTZ [Concomitant]
     Dosage: UNK
  5. ASPIRIN [Concomitant]
     Dosage: 81 mg, UNK
  6. CORICIDIN                          /00910301/ [Concomitant]
     Dosage: UNK
  7. ACTOS [Concomitant]
     Dosage: 15 mg, UNK
  8. PRAVASTATIN [Concomitant]
     Dosage: 40 mg, UNK

REACTIONS (3)
  - Furuncle [Not Recovered/Not Resolved]
  - Skin infection [Recovered/Resolved]
  - Urinary tract infection [Recovered/Resolved]
